FAERS Safety Report 7267498-5 (Version None)
Quarter: 2011Q1

REPORT INFORMATION
  Report Type: 
  Country: None (occurrence: None)
  Receive Date: 20110121
  Receipt Date: 20110107
  Transmission Date: 20110831
  Serious: Yes (Hospitalization)
  Sender: FDA-Public Use
  Company Number: 2011AM003646

PATIENT
  Age: 57 Year
  Sex: Male
  Weight: 149.687 kg

DRUGS (13)
  1. PLAVIX [Concomitant]
  2. SYMLIN [Suspect]
     Indication: TYPE 2 DIABETES MELLITUS
     Dosage: (180 MCG; TID; SC) (120 MCG; TID; SC)
     Route: 058
  3. LANTUS [Concomitant]
  4. SYMLIN [Suspect]
     Indication: TYPE 2 DIABETES MELLITUS
     Dosage: 120 MCG; TID; SC
     Route: 058
  5. SIMVASTATIN [Concomitant]
  6. GUAIFENESIN [Concomitant]
  7. MONTELIKAST [Concomitant]
  8. ASPIRIN [Concomitant]
  9. ADVAIR [Concomitant]
  10. ALPHAGAN [Concomitant]
  11. LORTAB [Concomitant]
  12. NOVOLOG [Concomitant]
  13. LOSARTAN POTASSIUM [Concomitant]

REACTIONS (7)
  - CORONARY ARTERIAL STENT INSERTION [None]
  - INCORRECT DOSE ADMINISTERED [None]
  - PNEUMONIA [None]
  - BLOOD GLUCOSE INCREASED [None]
  - WEIGHT INCREASED [None]
  - DYSPNOEA [None]
  - DECREASED APPETITE [None]
